FAERS Safety Report 26061302 (Version 1)
Quarter: 2025Q4

REPORT INFORMATION
  Report Type: Spontaneous
  Country: EU (occurrence: EU)
  Receive Date: 20251118
  Receipt Date: 20251118
  Transmission Date: 20260117
  Serious: Yes (Life-Threatening, Hospitalization, Other)
  Sender: NOVO NORDISK
  Company Number: None

PATIENT
  Age: 40 Year
  Sex: Male
  Weight: 119 kg

DRUGS (11)
  1. OZEMPIC [Suspect]
     Active Substance: SEMAGLUTIDE
     Indication: Weight control
     Dosage: 1 INJECTION ONCE PER WEEK
     Dates: start: 20241001, end: 20250919
  2. FORMOTEROL [Concomitant]
     Active Substance: FORMOTEROL
     Dosage: ?~AEROSOL, 12 ?G/DOSE (MICROGRAM PER DOSE)
     Route: 055
  3. BECLOMETHASONE DIPROPIONATE [Concomitant]
     Active Substance: BECLOMETHASONE DIPROPIONATE
     Dosage: ?~AEROSOL, 250 ?G/DOSE (MICROGRAM PER DOSE)
     Route: 055
  4. CITALOPRAM [Concomitant]
     Active Substance: CITALOPRAM
     Dosage: ?~FILM-COATED TABLET, 20 MG (MILLIGRAM)
     Route: 048
  5. EDOXABAN [Concomitant]
     Active Substance: EDOXABAN
     Dosage: TABLET, 60 MG (MILLIGRAM)
     Route: 048
  6. LORAZEPAM [Concomitant]
     Active Substance: LORAZEPAM
     Dosage: TABLET, 0,5 MG (MILLIGRAM)
     Route: 048
  7. METOPROLOL [Concomitant]
     Active Substance: METOPROLOL
     Dosage: CONTROLLED-RELEASE TABLET, 100 MG (MILLIGRAM)
     Route: 048
  8. PANTOPRAZOLE [Concomitant]
     Active Substance: PANTOPRAZOLE
     Dosage: ?~GASTRO-RESISTANT TABLET, 20 MG (MILLIGRAM)
     Route: 048
  9. ROSUVASTATIN [Concomitant]
     Active Substance: ROSUVASTATIN
     Dosage: TABLET, 10 MG (MILLIGRAM)
     Route: 048
  10. ALBUTEROL [Concomitant]
     Active Substance: ALBUTEROL
     Dosage: AEROSOL, 100 ?G/DOSE (MICROGRAM PER DOSE)
     Route: 055
  11. ZOLPIDEM [Concomitant]
     Active Substance: ZOLPIDEM TARTRATE
     Dosage: TABLET, 10 MG (MILLIGRAM)
     Route: 048

REACTIONS (4)
  - Impaired gastric emptying [Recovered/Resolved]
  - Acute respiratory distress syndrome [Recovered/Resolved]
  - Anaesthetic complication pulmonary [Recovered/Resolved]
  - Product use in unapproved indication [Recovered/Resolved]

NARRATIVE: CASE EVENT DATE: 20241001
